FAERS Safety Report 9310916 (Version 2)
Quarter: 2013Q3

REPORT INFORMATION
  Report Type: Spontaneous
  Country: FR (occurrence: FR)
  Receive Date: 20130528
  Receipt Date: 20130723
  Transmission Date: 20140515
  Serious: Yes (Hospitalization)
  Sender: FDA-Public Use
  Company Number: FR-JNJFOC-20130512749

PATIENT
  Age: 49 Year
  Sex: Male

DRUGS (9)
  1. XARELTO [Suspect]
     Indication: PULMONARY EMBOLISM
     Route: 048
     Dates: start: 20130305, end: 20130315
  2. ESOMEPRAZOLE [Suspect]
     Indication: LUNG INFECTION
     Route: 048
     Dates: start: 20130305, end: 20130312
  3. LOVENOX [Suspect]
     Indication: PRODUCT USED FOR UNKNOWN INDICATION
     Route: 065
     Dates: start: 20130315
  4. AMOXICILLINE (CLAVULANIC ACID) [Suspect]
     Indication: LUNG INFECTION
     Dosage: DOSE: 1G/125MG
     Route: 048
     Dates: start: 20130305, end: 20130312
  5. KETOPROFEN [Suspect]
     Indication: LUNG INFECTION
     Route: 048
     Dates: start: 20130305, end: 20130312
  6. AMLODIPINE [Suspect]
     Indication: PRODUCT USED FOR UNKNOWN INDICATION
     Route: 048
     Dates: start: 20130306
  7. PARACETAMOL [Suspect]
     Indication: PRODUCT USED FOR UNKNOWN INDICATION
     Route: 048
     Dates: start: 20130305
  8. TINZAPARIN SODIUM [Concomitant]
     Route: 065
  9. JOSACINE [Concomitant]
     Route: 048
     Dates: start: 20130313

REACTIONS (3)
  - Pleural effusion [Recovering/Resolving]
  - Haemothorax [Recovering/Resolving]
  - Chest pain [Recovered/Resolved]
